FAERS Safety Report 16801418 (Version 1)
Quarter: 2019Q3

REPORT INFORMATION
  Report Type: Spontaneous
  Country: JP (occurrence: JP)
  Receive Date: 20190912
  Receipt Date: 20190912
  Transmission Date: 20191005
  Serious: Yes (Disabling, Other)
  Sender: FDA-Public Use
  Company Number: JP-BAYER-2019-163079

PATIENT

DRUGS (3)
  1. LENVIMA [Concomitant]
     Active Substance: LENVATINIB
  2. STIVARGA [Suspect]
     Active Substance: REGORAFENIB
     Indication: HEPATOCELLULAR CARCINOMA
     Dosage: UNK UNK, QD
     Route: 048
  3. NEXAVAR [Concomitant]
     Active Substance: SORAFENIB

REACTIONS (2)
  - Blindness [None]
  - Visual impairment [Not Recovered/Not Resolved]
